FAERS Safety Report 21073367 (Version 3)
Quarter: 2022Q3

REPORT INFORMATION
  Report Type: Report from Study
  Country: JP (occurrence: JP)
  Receive Date: 20220712
  Receipt Date: 20220804
  Transmission Date: 20221027
  Serious: Yes (Hospitalization)
  Sender: FDA-Public Use
  Company Number: JP-SAKK-2022SA269219AA

PATIENT
  Age: 69 Year
  Sex: Female
  Weight: 52.4 kg

DRUGS (14)
  1. SARILUMAB [Suspect]
     Active Substance: SARILUMAB
     Indication: Rheumatoid arthritis
     Dosage: 200 MG, QOW
     Route: 058
     Dates: start: 20220408, end: 2022
  2. METHOTREXATE [Suspect]
     Active Substance: METHOTREXATE
     Indication: Rheumatoid arthritis
     Dosage: 6 MG, BID (1 DAY/WEEK)
     Route: 048
     Dates: start: 20220408, end: 20220701
  3. METHOTREXATE [Suspect]
     Active Substance: METHOTREXATE
     Dosage: 6 MG, BID (1 DAY/WEEK)
     Route: 048
     Dates: start: 20220713
  4. PREDNISOLONE [Suspect]
     Active Substance: PREDNISOLONE
     Indication: Rheumatoid arthritis
     Dosage: 5 MG, QD
     Route: 048
     Dates: start: 20220603, end: 20220701
  5. PREDNISOLONE [Suspect]
     Active Substance: PREDNISOLONE
     Dosage: 5 MG, QD
     Route: 048
     Dates: start: 20220701, end: 20220721
  6. PREDNISOLONE [Suspect]
     Active Substance: PREDNISOLONE
     Dosage: 20 MG, QD
     Route: 048
     Dates: start: 20220722
  7. VONOPRAZAN FUMARATE [Concomitant]
     Active Substance: VONOPRAZAN FUMARATE
     Indication: Prophylaxis
     Dosage: 10 MG, QD
     Route: 048
     Dates: start: 20210414
  8. FOLIAMIN NICHIYAKU [Concomitant]
     Indication: Hepatobiliary disorder prophylaxis
     Dosage: 5 MG, QW
     Route: 048
     Dates: start: 20220612, end: 20220701
  9. FOLIAMIN NICHIYAKU [Concomitant]
     Dosage: 5 MG, QW
     Route: 048
     Dates: start: 20220713
  10. LOXOPROFEN [Concomitant]
     Active Substance: LOXOPROFEN
     Indication: Rheumatoid arthritis
     Dosage: 60 MG, PRN
     Route: 048
     Dates: start: 20220401
  11. REBAMIPIDE [Concomitant]
     Active Substance: REBAMIPIDE
     Indication: Prophylaxis
     Dosage: 100 MG, PRN
     Route: 048
     Dates: start: 20220401
  12. LOXOPROFEN SODIUM [Concomitant]
     Active Substance: LOXOPROFEN SODIUM
     Indication: Rheumatoid arthritis
     Dosage: APPROPRIATE DOSE/AS APPROPRIATE
     Route: 062
     Dates: start: 20220401
  13. CANDESARTAN CILEXETIL [Concomitant]
     Active Substance: CANDESARTAN CILEXETIL
     Indication: Hypertension
     Dosage: 4 MG, BID
     Route: 048
     Dates: end: 20220720
  14. BENIDIPINE HYDROCHLORIDE [Concomitant]
     Active Substance: BENIDIPINE HYDROCHLORIDE
     Indication: Hypertension
     Dosage: 2 MG, BID
     Route: 048
     Dates: end: 20220720

REACTIONS (2)
  - Interstitial lung disease [Recovered/Resolved]
  - Dyspnoea [Recovered/Resolved]

NARRATIVE: CASE EVENT DATE: 20220701
